FAERS Safety Report 8871574 (Version 1)
Quarter: 2012Q4

REPORT INFORMATION
  Report Type: 
  Country: EC (occurrence: EC)
  Receive Date: 20121030
  Receipt Date: 20121030
  Transmission Date: 20130627
  Serious: Yes (Death, Other)
  Sender: FDA-Public Use
  Company Number: EC-BAXTER-2012BAX020889

PATIENT
  Age: 46 Year
  Sex: Male

DRUGS (7)
  1. DIANEAL PD-2 CON DEXTROSA AL 1.5% SOLUCION PARA DIALISIS PERITONEAL [Suspect]
     Indication: PERITONEAL DIALYSIS
     Dosage: 9500ml
     Route: 033
     Dates: end: 20121017
  2. CALCIUM CARBONATE [Concomitant]
     Indication: DRUG USE FOR UNKNOWN INDICATION
     Route: 065
  3. B COMPLEX [Concomitant]
     Indication: DRUG USE FOR UNKNOWN INDICATION
     Route: 065
  4. FOLIC ACID [Concomitant]
     Indication: DRUG USE FOR UNKNOWN INDICATION
     Route: 065
  5. VITAMIN C [Concomitant]
     Indication: DRUG USE FOR UNKNOWN INDICATION
     Route: 065
  6. HUMULIN [Concomitant]
     Indication: DIABETES
     Route: 058
  7. ERYTHROPOIETIN [Concomitant]
     Indication: DRUG USE FOR UNKNOWN INDICATION
     Route: 058

REACTIONS (2)
  - Death [Fatal]
  - Feeling abnormal [Unknown]
